FAERS Safety Report 19783557 (Version 1)
Quarter: 2021Q3

REPORT INFORMATION
  Report Type: Spontaneous
  Country: US (occurrence: US)
  Receive Date: 20210902
  Receipt Date: 20210902
  Transmission Date: 20211014
  Serious: Yes (Hospitalization, Other)
  Sender: FDA-Public Use
  Company Number: None

PATIENT
  Age: 56 Year
  Sex: Male
  Weight: 99.79 kg

DRUGS (1)
  1. REGEN?COV [Suspect]
     Active Substance: CASIRIVIMAB\IMDEVIMAB
     Indication: COVID-19
     Dosage: ?          OTHER FREQUENCY:ONCE;?
     Route: 041
     Dates: start: 20210902, end: 20210902

REACTIONS (7)
  - Pruritus [None]
  - Dyspnoea [None]
  - Unresponsive to stimuli [None]
  - Hypotension [None]
  - Urticaria [None]
  - Cough [None]
  - Hyperhidrosis [None]

NARRATIVE: CASE EVENT DATE: 20210902
